FAERS Safety Report 7280266-3 (Version None)
Quarter: 2011Q1

REPORT INFORMATION
  Report Type: 
  Country: None (occurrence: None)
  Receive Date: 20110208
  Receipt Date: 20101022
  Transmission Date: 20110831
  Serious: Yes (Other)
  Sender: FDA-Public Use
  Company Number: US-BAYER-200811982NA

PATIENT
  Sex: Female
  Weight: 55 kg

DRUGS (40)
  1. PROCARDIA [Concomitant]
  2. ADVAIR [Concomitant]
  3. ZEMPLAR [Concomitant]
  4. ARANESP [Concomitant]
  5. MAGNEVIST [Suspect]
     Dates: start: 20001108, end: 20001108
  6. OMNISCAN [Suspect]
     Indication: NUCLEAR MAGNETIC RESONANCE IMAGING
     Dates: start: 20050130, end: 20050130
  7. ROCALTROL [Concomitant]
  8. SENSIPAR [Concomitant]
  9. MAGNEVIST [Suspect]
     Dates: start: 19961030, end: 19961030
  10. MAGNEVIST [Suspect]
     Dates: start: 19981231, end: 19981231
  11. MAGNEVIST [Suspect]
     Dates: start: 20030320, end: 20030320
  12. MIACALCIN [Concomitant]
  13. CYTOXAN [Concomitant]
     Dates: start: 19880101, end: 19910101
  14. MAGNEVIST [Suspect]
     Dates: start: 19991109, end: 19991109
  15. MAGNEVIST [Suspect]
     Dates: start: 20050130, end: 20050130
  16. NEPHROVITE [VIT C,VIT H,B5,B12,B9,B3,B6,B2,B1 HCL] [Concomitant]
  17. ALEVE [Concomitant]
  18. MAGNEVIST [Suspect]
     Indication: NUCLEAR MAGNETIC RESONANCE IMAGING ABDOMINAL
     Dates: start: 19970430, end: 19970430
  19. MAGNEVIST [Suspect]
     Dates: start: 19971117, end: 19971117
  20. PREMPRO [Concomitant]
  21. SYNTHROID [Concomitant]
  22. FERROUS SULFATE [Concomitant]
  23. PROGRAF [Concomitant]
  24. PREDNISONE [Concomitant]
  25. DEMADEX [Concomitant]
  26. EPOGEN [Concomitant]
  27. CELEBREX [Concomitant]
  28. ZESTRIL [Concomitant]
  29. EXFORGE [Concomitant]
  30. MAGNEVIST [Suspect]
     Dates: start: 20020130, end: 20020130
  31. MAGNEVIST [Suspect]
     Dates: start: 20040520, end: 20040520
  32. MYFORTIC [Concomitant]
  33. SPIRONOLACTONE [Concomitant]
  34. ALTEPLASE [Concomitant]
  35. OMNISCAN [Suspect]
     Dates: start: 20050320, end: 20050320
  36. FOLIC ACID [Concomitant]
  37. UNCODEABLE ^UNCLASSIFIABLE^ [Concomitant]
  38. RENAGEL [Concomitant]
  39. METOPROLOL [Concomitant]
  40. CLONIDINE [Concomitant]

REACTIONS (38)
  - DRY SKIN [None]
  - RENAL FAILURE CHRONIC [None]
  - RAYNAUD'S PHENOMENON [None]
  - ANXIETY [None]
  - NEPHROGENIC SYSTEMIC FIBROSIS [None]
  - BURSITIS [None]
  - OSTEOPOROSIS [None]
  - BASAL CELL CARCINOMA [None]
  - MUSCLE ATROPHY [None]
  - EOSINOPHILIC FASCIITIS [None]
  - CALCINOSIS [None]
  - SCLERODERMA [None]
  - DYSPEPSIA [None]
  - GASTROOESOPHAGEAL REFLUX DISEASE [None]
  - CALCIPHYLAXIS [None]
  - DERMATOMYOSITIS [None]
  - JAW CYST [None]
  - OPTIC NEURITIS [None]
  - PERITONITIS [None]
  - ANAEMIA [None]
  - MUSCLE CONTRACTURE [None]
  - PSEUDOMONAS INFECTION [None]
  - THROMBOSIS [None]
  - ARTHRITIS [None]
  - NAIL DISORDER [None]
  - SKIN HYPERPIGMENTATION [None]
  - HYPERPARATHYROIDISM SECONDARY [None]
  - POLYMYOSITIS [None]
  - DEPRESSION [None]
  - DERMATITIS [None]
  - ARRHYTHMIA [None]
  - ARTHRALGIA [None]
  - SYNOVITIS [None]
  - CONVULSION [None]
  - DRUG HYPERSENSITIVITY [None]
  - MUSCULOSKELETAL PAIN [None]
  - PARAESTHESIA [None]
  - SCLERODACTYLIA [None]
